FAERS Safety Report 22285314 (Version 1)
Quarter: 2023Q2

REPORT INFORMATION
  Report Type: Spontaneous
  Country: US (occurrence: US)
  Receive Date: 20230504
  Receipt Date: 20230504
  Transmission Date: 20230722
  Serious: Yes (Other)
  Sender: FDA-Public Use
  Company Number: US-PROVEPHARM, INC.-2023-APO-000009

PATIENT

DRUGS (4)
  1. PIPERACILLIN AND TAZOBACTAM [Suspect]
     Active Substance: PIPERACILLIN SODIUM\TAZOBACTAM SODIUM
     Indication: Septic shock
  2. NOREPINEPHRINE [Concomitant]
     Active Substance: NOREPINEPHRINE
     Indication: Septic shock
  3. MIDODRINE [Concomitant]
     Active Substance: MIDODRINE
     Indication: Septic shock
  4. PROPOFOL [Concomitant]
     Active Substance: PROPOFOL
     Indication: Sedative therapy

REACTIONS (3)
  - Drug-induced liver injury [Unknown]
  - Liver function test increased [Recovered/Resolved]
  - Maternal exposure during pregnancy [Recovered/Resolved]
